FAERS Safety Report 15279612 (Version 2)
Quarter: 2018Q3

REPORT INFORMATION
  Report Type: Spontaneous
  Country: US (occurrence: US)
  Receive Date: 20180815
  Receipt Date: 20180820
  Transmission Date: 20181010
  Serious: No
  Sender: FDA-Public Use
  Company Number: US-PFIZER INC-2018324707

PATIENT
  Age: 50 Year
  Sex: Female

DRUGS (2)
  1. VALTREX [Concomitant]
     Active Substance: VALACYCLOVIR HYDROCHLORIDE
     Dosage: UNK
  2. XELJANZ XR [Suspect]
     Active Substance: TOFACITINIB CITRATE
     Dosage: 11 MG, INTERMITTENTLY
     Dates: start: 201711

REACTIONS (2)
  - Nausea [Unknown]
  - Product use issue [Unknown]
